FAERS Safety Report 6737318-3 (Version None)
Quarter: 2010Q2

REPORT INFORMATION
  Report Type: 
  Country: None (occurrence: None)
  Receive Date: 20100524
  Receipt Date: 20100514
  Transmission Date: 20101027
  Serious: No
  Sender: FDA-Public Use
  Company Number: 2010BI001380

PATIENT
  Age: 31 Year
  Sex: Female

DRUGS (2)
  1. TYSABRI [Suspect]
     Indication: MULTIPLE SCLEROSIS
     Route: 042
     Dates: start: 20080103
  2. COPAXONE [Concomitant]
     Indication: MULTIPLE SCLEROSIS

REACTIONS (16)
  - ABNORMAL LOSS OF WEIGHT [None]
  - ANGER [None]
  - APHASIA [None]
  - ARTHRALGIA [None]
  - BLOOD GLUCOSE INCREASED [None]
  - BLOOD POTASSIUM DECREASED [None]
  - COGNITIVE DISORDER [None]
  - EAR INFECTION [None]
  - FATIGUE [None]
  - HYPERGLYCAEMIA [None]
  - INFUSION RELATED REACTION [None]
  - MIGRAINE [None]
  - MULTIPLE SCLEROSIS [None]
  - PREMENSTRUAL SYNDROME [None]
  - SINUSITIS [None]
  - SOMNOLENCE [None]
